FAERS Safety Report 9845221 (Version 1)
Quarter: 2014Q1

REPORT INFORMATION
  Report Type: Spontaneous
  Country: US (occurrence: None)
  Receive Date: 20140123
  Receipt Date: 20140123
  Transmission Date: 20141002
  Serious: No
  Sender: FDA-Public Use
  Company Number: None

PATIENT
  Age: 47 Year
  Sex: Female
  Weight: 128.37 kg

DRUGS (1)
  1. CYMBALTA [Suspect]
     Indication: FIBROMYALGIA
     Dosage: 1 CAPSULE  ONCE DAILY BY MOUTH
     Route: 048
     Dates: start: 20131028, end: 20131101

REACTIONS (3)
  - Discomfort [None]
  - Negative thoughts [None]
  - Feeling abnormal [None]
